FAERS Safety Report 9519738 (Version 1)
Quarter: 2013Q3

REPORT INFORMATION
  Report Type: Spontaneous
  Country: GB (occurrence: GB)
  Receive Date: 20130912
  Receipt Date: 20130912
  Transmission Date: 20140515
  Serious: Yes (Hospitalization)
  Sender: FDA-Public Use
  Company Number: GB-ACTAVIS-2013-16155

PATIENT
  Sex: 0

DRUGS (5)
  1. INDAPAMIDE (UNKNOWN) [Suspect]
     Indication: HYPERTENSION
     Dosage: 2.5 MG MILLIGRAM(S) INTERVAL= 1 DAY(S)
     Route: 048
     Dates: start: 20130806, end: 20130808
  2. ESLICARBAZEPINE [Suspect]
     Indication: EPILEPSY
     Dosage: 1200 MG, UNK
     Route: 048
     Dates: start: 20130601
  3. ESLICARBAZEPINE [Suspect]
     Dosage: 800 MG MILLIGRAM(S) INTERVAL= 1 DAY(S)
     Route: 048
  4. RAMIPRIL [Concomitant]
     Indication: HYPERTENSION
     Dosage: 5 MG, DAILY
     Route: 065
  5. ASPIRIN [Concomitant]
     Indication: PRODUCT USED FOR UNKNOWN INDICATION
     Dosage: LOW DOSE
     Route: 065

REACTIONS (6)
  - Hyponatraemia [Unknown]
  - Malaise [Unknown]
  - Feeling abnormal [Unknown]
  - Headache [Unknown]
  - Anxiety [Unknown]
  - Nausea [Unknown]
